FAERS Safety Report 8898029 (Version 1)
Quarter: 2012Q4

REPORT INFORMATION
  Report Type: 
  Country: US (occurrence: US)
  Receive Date: 20121108
  Receipt Date: 20121108
  Transmission Date: 20130627
  Serious: No
  Sender: FDA-Public Use
  Company Number: US-AMGEN-USASP2012033021

PATIENT
  Sex: Female
  Weight: 70.3 kg

DRUGS (11)
  1. ENBREL [Suspect]
     Indication: PRODUCT USED FOR UNKNOWN INDICATION
     Dosage: 50 mg, qwk
     Route: 058
  2. MELOXICAM [Concomitant]
     Dosage: 15 mg, UNK
  3. METHOTREXATE [Concomitant]
     Dosage: 2.5 mg, UNK
  4. PREDNISONE [Concomitant]
     Indication: CONDITION AGGRAVATED
     Dosage: 1 mg, UNK
  5. DIOVAN [Concomitant]
     Dosage: 160 mg, UNK
  6. TRAMADOL HCL [Concomitant]
     Dosage: 50 mg, UNK
  7. LANSOPRAZOLE [Concomitant]
     Dosage: 15 mg, UNK
  8. VERAPAMIL [Concomitant]
     Dosage: 100 mg, UNK
  9. HYDROCODONE W/APAP                 /00607101/ [Concomitant]
     Dosage: UNK
  10. SULFASALAZIN [Concomitant]
     Dosage: 500 mg, UNK
  11. FOLIC ACID [Concomitant]
     Dosage: 20 mg, UNK

REACTIONS (2)
  - Condition aggravated [Unknown]
  - Injection site pain [Unknown]
